FAERS Safety Report 11055715 (Version 1)
Quarter: 2015Q2

REPORT INFORMATION
  Report Type: Spontaneous
  Country: US (occurrence: None)
  Receive Date: 20150421
  Receipt Date: 20150421
  Transmission Date: 20150821
  Serious: No
  Sender: FDA-Public Use
  Company Number: None

PATIENT
  Age: 57 Year
  Sex: Female

DRUGS (1)
  1. SPRYCEL [Suspect]
     Active Substance: DASATINIB
     Dosage: 100MG, QD, PO
     Route: 048
     Dates: start: 20150215

REACTIONS (2)
  - Constipation [None]
  - Diarrhoea [None]

NARRATIVE: CASE EVENT DATE: 201504
